FAERS Safety Report 16184676 (Version 2)
Quarter: 2019Q2

REPORT INFORMATION
  Report Type: Spontaneous
  Country: US (occurrence: US)
  Receive Date: 20190411
  Receipt Date: 20190603
  Transmission Date: 20190711
  Serious: Yes (Other)
  Sender: FDA-Public Use
  Company Number: US-HORIZON-PEN-0380-2019

PATIENT
  Age: 70 Year
  Sex: Female

DRUGS (4)
  1. CARBIDOPA. [Concomitant]
     Active Substance: CARBIDOPA
  2. PENNSAID [Suspect]
     Active Substance: DICLOFENAC SODIUM
     Indication: ARTHRITIS
     Dosage: AS NEEDED
  3. LEVODOPA [Concomitant]
     Active Substance: LEVODOPA
  4. AMANTADINE. [Concomitant]
     Active Substance: AMANTADINE HYDROCHLORIDE

REACTIONS (5)
  - Product use issue [Unknown]
  - Expired product administered [Unknown]
  - Product use in unapproved indication [Unknown]
  - Prescription drug used without a prescription [Unknown]
  - Knee operation [Unknown]
